FAERS Safety Report 13214090 (Version 1)
Quarter: 2017Q1

REPORT INFORMATION
  Report Type: Spontaneous
  Country: US (occurrence: US)
  Receive Date: 20170209
  Receipt Date: 20170209
  Transmission Date: 20170428
  Serious: No
  Sender: FDA-Public Use
  Company Number: US-ALLERGAN-1668215US

PATIENT
  Sex: Female

DRUGS (22)
  1. XANAX [Concomitant]
     Active Substance: ALPRAZOLAM
     Indication: ANXIETY
     Dosage: UNK UNK, TID
     Route: 048
  2. EFFEXOR [Concomitant]
     Active Substance: VENLAFAXINE HYDROCHLORIDE
     Indication: DEPRESSION
     Dosage: UNK
     Route: 048
  3. TRIAMCINOLONE [Concomitant]
     Active Substance: TRIAMCINOLONE
     Indication: ARTHROPOD BITE
     Dosage: UNK
     Route: 048
  4. POLYETHYLENE GLYCOL [Concomitant]
     Active Substance: POLYETHYLENE GLYCOLS
     Indication: GASTRIC DISORDER
     Dosage: UNK UNK, QOD
     Route: 048
  5. XYZAL [Concomitant]
     Active Substance: LEVOCETIRIZINE DIHYDROCHLORIDE
     Indication: ARTHROPOD BITE
  6. VIBERZI [Concomitant]
     Active Substance: ELUXADOLINE
     Indication: GASTROOESOPHAGEAL REFLUX DISEASE
  7. ROBAXIN [Concomitant]
     Active Substance: METHOCARBAMOL
     Indication: BACK PAIN
     Dosage: UNK UNK, TID
     Route: 048
  8. PANTOPRAZOLE [Concomitant]
     Active Substance: PANTOPRAZOLE SODIUM
     Indication: GASTRIC DISORDER
  9. AMBIEN [Concomitant]
     Active Substance: ZOLPIDEM TARTRATE
     Indication: INSOMNIA
     Dosage: UNK UNK, PRN
     Route: 048
  10. ZYRTEC [Concomitant]
     Active Substance: CETIRIZINE HYDROCHLORIDE
     Indication: HYPERSENSITIVITY
     Dosage: UNK
     Route: 048
  11. METFORMIN [Concomitant]
     Active Substance: METFORMIN HYDROCHLORIDE
     Indication: BLOOD GLUCOSE INCREASED
     Route: 048
  12. VIBERZI [Concomitant]
     Active Substance: ELUXADOLINE
     Indication: GASTRIC DISORDER
     Dosage: 100 MG, QD
     Route: 048
     Dates: start: 2009
  13. VIBERZI [Concomitant]
     Active Substance: ELUXADOLINE
     Indication: NAUSEA
  14. LOSARTAN. [Concomitant]
     Active Substance: LOSARTAN
     Indication: HYPERTENSION
     Route: 048
  15. HORIZANT [Concomitant]
     Active Substance: GABAPENTIN ENACARBIL
     Indication: BACK DISORDER
     Dosage: UNK UNK, BID
     Route: 048
  16. PANTOPRAZOLE [Concomitant]
     Active Substance: PANTOPRAZOLE SODIUM
     Indication: HYPERSENSITIVITY
     Dosage: UNK
     Route: 048
  17. CYCLOBENZAPRINE [Concomitant]
     Active Substance: CYCLOBENZAPRINE
     Indication: BACK DISORDER
     Dosage: UNK
     Route: 048
  18. FLUTICASONE. [Concomitant]
     Active Substance: FLUTICASONE
     Indication: HYPERSENSITIVITY
     Dosage: UNK
     Route: 048
  19. BOTOX [Suspect]
     Active Substance: ONABOTULINUMTOXINA
     Indication: VOCAL CORD PARALYSIS
     Dosage: UNK, SINGLE
     Route: 030
  20. DICYCLOMINE                        /00068601/ [Concomitant]
     Active Substance: DICYCLOMINE HYDROCHLORIDE
     Indication: GASTRIC DISORDER
     Dosage: UNK UNK, TID
     Route: 048
  21. ELIDEL [Concomitant]
     Active Substance: PIMECROLIMUS
     Indication: ARTHROPOD BITE
     Dosage: UNK
     Route: 048
  22. XYZAL [Concomitant]
     Active Substance: LEVOCETIRIZINE DIHYDROCHLORIDE
     Indication: ANTIALLERGIC THERAPY
     Dosage: UNK
     Route: 048

REACTIONS (8)
  - Throat irritation [Not Recovered/Not Resolved]
  - Tooth fracture [Not Recovered/Not Resolved]
  - Aphasia [Recovered/Resolved]
  - Skin disorder [Not Recovered/Not Resolved]
  - Off label use [Unknown]
  - Polyp [Unknown]
  - Procedural complication [Unknown]
  - Orthodontic appliance user [Not Recovered/Not Resolved]

NARRATIVE: CASE EVENT DATE: 2009
